FAERS Safety Report 4584799-X (Version None)
Quarter: 2005Q1

REPORT INFORMATION
  Report Type: 
  Country: None (occurrence: None)
  Receive Date: 20050217
  Receipt Date: 20050208
  Transmission Date: 20050727
  Serious: Yes (Hospitalization, Disabling, Other)
  Sender: FDA-Public Use
  Company Number: US-JNJFOC-20040402216

PATIENT
  Sex: Female
  Weight: 83.46 kg

DRUGS (9)
  1. REMICADE [Suspect]
     Route: 042
  2. REMICADE [Suspect]
     Indication: CROHN'S DISEASE
     Route: 042
  3. 5-ASA [Concomitant]
     Dates: start: 20000101
  4. STEROIDS [Concomitant]
  5. SULFASALAZINE [Concomitant]
  6. ASPIRIN [Concomitant]
     Dates: start: 20000101
  7. POTASSIUM CHLORIDE [Concomitant]
  8. LASIX [Concomitant]
  9. PREDNISONE [Concomitant]

REACTIONS (14)
  - ARTHRALGIA [None]
  - BLOOD SODIUM DECREASED [None]
  - DERMATITIS [None]
  - DRUG HYPERSENSITIVITY [None]
  - HEPATIC ENZYME INCREASED [None]
  - INTERNATIONAL NORMALISED RATIO INCREASED [None]
  - METABOLIC ACIDOSIS [None]
  - NECK PAIN [None]
  - PAIN IN JAW [None]
  - PLEURAL EFFUSION [None]
  - PRURITUS [None]
  - RENAL FAILURE [None]
  - URTICARIA [None]
  - WHITE BLOOD CELL COUNT INCREASED [None]
